FAERS Safety Report 5212097-X (Version None)
Quarter: 2007Q1

REPORT INFORMATION
  Report Type: 
  Country: None (occurrence: None)
  Receive Date: 20070118
  Receipt Date: 20070109
  Transmission Date: 20070707
  Serious: Yes (Hospitalization)
  Sender: FDA-Public Use
  Company Number: US-ROCHE-439581

PATIENT
  Age: 54 Year
  Sex: Female

DRUGS (2)
  1. PEGASYS [Suspect]
     Dosage: ROUTE REPORTED AS INJ.
     Route: 050
     Dates: start: 20051021
  2. RIBAVIRIN [Suspect]
     Dosage: DOSING FREQUENCY REPORTED AS 3 TABS IN IN THE MORNING, 3 TABS IN THE EVENING.
     Route: 048
     Dates: start: 20051021

REACTIONS (5)
  - FATIGUE [None]
  - HYPOTHYROIDISM [None]
  - NEPHROLITHIASIS [None]
  - VIRAL LOAD INCREASED [None]
  - WHITE BLOOD CELL COUNT DECREASED [None]
